FAERS Safety Report 7119196-6 (Version None)
Quarter: 2010Q4

REPORT INFORMATION
  Report Type: 
  Country: None (occurrence: None)
  Receive Date: 20101123
  Receipt Date: 20100224
  Transmission Date: 20110411
  Serious: No
  Sender: FDA-Public Use
  Company Number: US-MYLANLABS-2010S1003243

PATIENT
  Sex: Female

DRUGS (4)
  1. TRIAMTERENE AND HYDROCHLOROTHIAZIDE [Suspect]
     Indication: BLOOD PRESSURE INCREASED
     Route: 048
  2. TRIAMTERENE AND HYDROCHLOROTHIAZIDE [Suspect]
     Route: 048
  3. TRIAMTERENE AND HYDROCHLOROTHIAZIDE [Suspect]
     Route: 048
     Dates: start: 20100224
  4. TRIAMTERENE AND HYDROCHLOROTHIAZIDE [Suspect]
     Route: 048
     Dates: start: 20100224

REACTIONS (1)
  - SUPRAVENTRICULAR EXTRASYSTOLES [None]
